FAERS Safety Report 7630030-8 (Version None)
Quarter: 2011Q3

REPORT INFORMATION
  Report Type: 
  Country: None (occurrence: None)
  Receive Date: 20110715
  Receipt Date: 20110704
  Transmission Date: 20111222
  Serious: Yes (Hospitalization)
  Sender: FDA-Public Use
  Company Number: DSM-2011-00683

PATIENT
  Age: 79 Year
  Sex: Male

DRUGS (3)
  1. DIAMICRON (GLICLAZIDE) (GLICLAZIDE) [Concomitant]
  2. OLMESARTAN MEDOXOMIL [Suspect]
     Indication: PRODUCT USED FOR UNKNOWN INDICATION
     Dosage: 20 MG (20 MG,1 IN 1 D), ORAL
     Route: 048
     Dates: start: 20081201, end: 20090201
  3. STAGID (METFORMIN EMBONATE) (METFORMIN EMBONATE) [Suspect]

REACTIONS (7)
  - DEEP VEIN THROMBOSIS [None]
  - ATRIAL FLUTTER [None]
  - DYSPNOEA [None]
  - PULMONARY FIBROSIS [None]
  - LUNG DISORDER [None]
  - PLEURAL EFFUSION [None]
  - CREPITATIONS [None]
